FAERS Safety Report 5792787-0 (Version None)
Quarter: 2008Q2

REPORT INFORMATION
  Report Type: 
  Country: None (occurrence: None)
  Receive Date: 20080627
  Receipt Date: 20080302
  Transmission Date: 20081010
  Serious: No
  Sender: FDA-Public Use
  Company Number: US-BAYER-200816331NA

PATIENT
  Age: 36 Year
  Sex: Female
  Weight: 84 kg

DRUGS (2)
  1. MIRENA [Suspect]
     Indication: CONTRACEPTION
     Route: 014
     Dates: start: 20030201, end: 20080201
  2. PAXIL [Concomitant]
     Indication: MOOD SWINGS
     Dates: start: 20030101, end: 20040101

REACTIONS (4)
  - DEPRESSION [None]
  - MOOD SWINGS [None]
  - SOCIAL PHOBIA [None]
  - WEIGHT INCREASED [None]
